FAERS Safety Report 5593392-1 (Version None)
Quarter: 2008Q1

REPORT INFORMATION
  Report Type: 
  Country: None (occurrence: None)
  Receive Date: 20080116
  Receipt Date: 20080108
  Transmission Date: 20080703
  Serious: Yes (Death)
  Sender: FDA-Public Use
  Company Number: US-BRISTOL-MYERS SQUIBB COMPANY-13963368

PATIENT
  Age: 53 Year
  Sex: Male
  Weight: 83 kg

DRUGS (6)
  1. SPRYCEL [Suspect]
     Indication: HEPATIC NEOPLASM MALIGNANT
     Dosage: CYCLE=28 DAYS,100 MG EVERY MORNING AND 50MG EVERY EVENING, 12 HOURS APART
     Route: 048
     Dates: start: 20071011, end: 20071025
  2. MARINOL [Concomitant]
  3. HYDROCODONE [Concomitant]
  4. LACTULOSE [Concomitant]
  5. COLACE [Concomitant]
  6. ZOFRAN [Concomitant]

REACTIONS (1)
  - SUDDEN DEATH [None]
